FAERS Safety Report 23042152 (Version 2)
Quarter: 2023Q4

REPORT INFORMATION
  Report Type: Report from Study
  Country: US (occurrence: US)
  Receive Date: 20231008
  Receipt Date: 20231220
  Transmission Date: 20240110
  Serious: No
  Sender: FDA-Public Use
  Company Number: US-002147023-NVSC2023US216698

PATIENT
  Age: 73 Year
  Sex: Female

DRUGS (1)
  1. PIQRAY [Suspect]
     Active Substance: ALPELISIB
     Indication: Breast cancer metastatic
     Dosage: UNK
     Route: 048
     Dates: start: 202309, end: 202310

REACTIONS (5)
  - Dysphagia [Unknown]
  - Skin exfoliation [Unknown]
  - Hyperglycaemia [Unknown]
  - Dry mouth [Unknown]
  - Dry skin [Unknown]

NARRATIVE: CASE EVENT DATE: 20230901
